FAERS Safety Report 6202093-8 (Version None)
Quarter: 2009Q2

REPORT INFORMATION
  Report Type: 
  Country: None (occurrence: None)
  Receive Date: 20090526
  Receipt Date: 20090520
  Transmission Date: 20091009
  Serious: Yes (Death, Congenital Anomaly)
  Sender: FDA-Public Use
  Company Number: NL-JNJFOC-20090505555

PATIENT

DRUGS (2)
  1. HALDOL [Suspect]
     Indication: DRUG EXPOSURE DURING PREGNANCY
  2. LITHIUM [Suspect]
     Indication: DRUG EXPOSURE DURING PREGNANCY

REACTIONS (3)
  - DEATH [None]
  - EBSTEIN'S ANOMALY [None]
  - PULMONARY HYPOPLASIA [None]
